FAERS Safety Report 25397471 (Version 1)
Quarter: 2025Q2

REPORT INFORMATION
  Report Type: Other
  Country: FR (occurrence: None)
  Receive Date: 20250604
  Receipt Date: 20250604
  Transmission Date: 20250716
  Serious: Yes (Hospitalization, Other)
  Sender: INCYTE
  Company Number: None

PATIENT
  Age: 35 Year

DRUGS (1)
  1. RUXOLITINIB [Suspect]
     Active Substance: RUXOLITINIB
     Indication: Graft versus host disease
     Dosage: 20 MG, QD, COMPRESSED

REACTIONS (1)
  - Pancytopenia [Recovered/Resolved]
